FAERS Safety Report 8947014 (Version 1)
Quarter: 2012Q4

REPORT INFORMATION
  Report Type: 
  Country: US (occurrence: US)
  Receive Date: 20121205
  Receipt Date: 20121205
  Transmission Date: 20130627
  Serious: No
  Sender: FDA-Public Use
  Company Number: US-TEVA-358173USA

PATIENT
  Sex: Female
  Weight: 59.02 kg

DRUGS (4)
  1. QNASL [Suspect]
     Indication: RHINITIS ALLERGIC
     Dosage: 320 Microgram Daily;
     Route: 045
     Dates: start: 201208, end: 20120906
  2. ALLERGY DROPS [Concomitant]
     Indication: HYPERSENSITIVITY
     Route: 048
     Dates: start: 201208
  3. BIRTH CONTROL [Concomitant]
     Indication: CONTRACEPTION
     Dosage: 1 Dosage forms Daily;
     Route: 048
  4. ZYRTEC [Concomitant]
     Indication: HYPERSENSITIVITY
     Route: 048

REACTIONS (1)
  - Stomatitis [Not Recovered/Not Resolved]
